FAERS Safety Report 19143951 (Version 2)
Quarter: 2021Q3

REPORT INFORMATION
  Report Type: Spontaneous
  Country: US (occurrence: US)
  Receive Date: 20210416
  Receipt Date: 20210722
  Transmission Date: 20211014
  Serious: Yes (Other)
  Sender: FDA-Public Use
  Company Number: US-JNJFOC-20210427664

PATIENT
  Age: 64 Year
  Sex: Female

DRUGS (2)
  1. STELARA [Suspect]
     Active Substance: USTEKINUMAB
     Indication: PSORIASIS
     Route: 058
     Dates: start: 201706
  2. STELARA [Suspect]
     Active Substance: USTEKINUMAB

REACTIONS (1)
  - Gallbladder operation [Unknown]

NARRATIVE: CASE EVENT DATE: 202102
